FAERS Safety Report 19232040 (Version 4)
Quarter: 2022Q1

REPORT INFORMATION
  Report Type: Spontaneous
  Country: CO (occurrence: CO)
  Receive Date: 20210507
  Receipt Date: 20220321
  Transmission Date: 20220423
  Serious: Yes (Hospitalization)
  Sender: FDA-Public Use
  Company Number: CO-VERTEX PHARMACEUTICALS-2021-007341

PATIENT
  Age: 12 Year
  Sex: Male

DRUGS (5)
  1. SYMDEKO [Suspect]
     Active Substance: IVACAFTOR\TEZACAFTOR
     Indication: Cystic fibrosis
     Dosage: 50 MG TEZACAFTOR/75MG IVACAFTOR AND 75 MG IVACAFTOR, QD
     Route: 048
     Dates: start: 20210317, end: 20210630
  2. ALBUTEROL [Concomitant]
     Active Substance: ALBUTEROL
     Indication: Cystic fibrosis
     Dosage: 10 MG, QD
  3. TOBRAMYCIN [Concomitant]
     Active Substance: TOBRAMYCIN
     Indication: Cystic fibrosis
     Dosage: 28 MG, QD
  4. DORNASA ALFA [Concomitant]
     Indication: Cystic fibrosis
     Dosage: 2.5 MG, QD
  5. SALMETEROL [Concomitant]
     Active Substance: SALMETEROL
     Indication: Cystic fibrosis
     Dosage: 25 MG, QD

REACTIONS (3)
  - Infective pulmonary exacerbation of cystic fibrosis [Recovered/Resolved]
  - Infective pulmonary exacerbation of cystic fibrosis [Recovering/Resolving]
  - Treatment noncompliance [Unknown]

NARRATIVE: CASE EVENT DATE: 20210420
